FAERS Safety Report 6329658-7 (Version None)
Quarter: 2009Q3

REPORT INFORMATION
  Report Type: 
  Country: None (occurrence: None)
  Receive Date: 20090826
  Receipt Date: 20090821
  Transmission Date: 20100115
  Serious: Yes (Hospitalization)
  Sender: FDA-Public Use
  Company Number: FR-BRISTOL-MYERS SQUIBB COMPANY-14752778

PATIENT
  Age: 68 Year
  Sex: Male

DRUGS (8)
  1. GLUCOPHAGE [Suspect]
     Indication: TYPE 2 DIABETES MELLITUS
     Route: 048
  2. BISOPROLOL [Suspect]
     Dosage: TAKEN IN THE MORNING
     Route: 048
  3. IMMUCYST [Suspect]
     Indication: CARCINOMA IN SITU OF BLADDER
     Dosage: TAKEN EVERY 2 TO 3 WEEKS;9TH INJ ON 16JUN09
     Route: 043
     Dates: start: 20090201, end: 20090618
  4. GLIBENCLAMIDE [Suspect]
     Indication: TYPE 2 DIABETES MELLITUS
     Dosage: GLIBENCLAMIDE 5MG TABS
     Route: 048
  5. AVANDIA [Suspect]
     Indication: TYPE 2 DIABETES MELLITUS
     Dosage: TABS
     Route: 048
  6. JANUVIA [Suspect]
     Indication: TYPE 2 DIABETES MELLITUS
     Dosage: JANUVIA 100MG TABS ;TAKEN IN THE MORNING
     Route: 048
  7. COVERSYL [Suspect]
     Dosage: COVERSYL TABS;TAKEN IN THE MORNING
     Route: 048
  8. EZETROL [Suspect]
     Dosage: EZETROL TABS;TAKEN IN THE EVENING
     Route: 048

REACTIONS (1)
  - GRANULOMATOUS LIVER DISEASE [None]
